FAERS Safety Report 5116968-4 (Version None)
Quarter: 2006Q3

REPORT INFORMATION
  Report Type: 
  Country: None (occurrence: None)
  Receive Date: 20060922
  Receipt Date: 20060913
  Transmission Date: 20061208
  Serious: Yes (Death)
  Sender: FDA-Public Use
  Company Number: 2006-147831-NL

PATIENT
  Age: 49 Year
  Sex: Female

DRUGS (10)
  1. DANAPAROID SODIUM [Suspect]
     Indication: DISSEMINATED INTRAVASCULAR COAGULATION
     Dosage: INTRAVENOUS (NOS)
     Route: 042
     Dates: start: 20041103, end: 20041105
  2. GABEXATE MESILATE [Concomitant]
  3. ANTITHROMBIN III [Concomitant]
  4. MINOCYCLINE HYDROCHLORIDE [Concomitant]
  5. CILASTATIN W/IMIPENEM [Concomitant]
  6. OMEPRAZOLE SODIUM [Concomitant]
  7. NAFAMOSTAT MESILATE [Concomitant]
  8. SIVELESTAT [Concomitant]
  9. DOPAMINE HCL [Concomitant]
  10. DOBUTAMINE HCL [Concomitant]

REACTIONS (6)
  - ACTIVATED PARTIAL THROMBOPLASTIN TIME PROLONGED [None]
  - ALANINE AMINOTRANSFERASE INCREASED [None]
  - ASPARTATE AMINOTRANSFERASE INCREASED [None]
  - BLOOD ALKALINE PHOSPHATASE INCREASED [None]
  - BLOOD LACTATE DEHYDROGENASE INCREASED [None]
  - GAMMA-GLUTAMYLTRANSFERASE INCREASED [None]
